FAERS Safety Report 10967826 (Version 1)
Quarter: 2015Q1

REPORT INFORMATION
  Report Type: Spontaneous
  Country: US (occurrence: None)
  Receive Date: 20150226
  Receipt Date: 20150226
  Transmission Date: 20150721
  Serious: No
  Sender: FDA-Public Use
  Company Number: TPA2010A01134

PATIENT
  Age: 7 Decade
  Sex: Female

DRUGS (1)
  1. ULORIC [Suspect]
     Active Substance: FEBUXOSTAT
     Indication: PRODUCT USED FOR UNKNOWN INDICATION
     Route: 048
     Dates: start: 200907, end: 200907

REACTIONS (2)
  - Drug ineffective [None]
  - White blood cell count increased [None]

NARRATIVE: CASE EVENT DATE: 201002
